FAERS Safety Report 6179750-5 (Version None)
Quarter: 2009Q2

REPORT INFORMATION
  Report Type: 
  Country: None (occurrence: None)
  Receive Date: 20090505
  Receipt Date: 20090428
  Transmission Date: 20091009
  Serious: Yes (Hospitalization)
  Sender: FDA-Public Use
  Company Number: US-PURDUE-USA_2009_0038025

PATIENT
  Sex: Male

DRUGS (2)
  1. DILAUDID [Suspect]
     Indication: PAIN
  2. OPANA ER [Suspect]
     Indication: PAIN
     Dosage: UNK, UNK

REACTIONS (3)
  - ABDOMINAL DISCOMFORT [None]
  - BLOOD AMYLASE INCREASED [None]
  - PANCREATITIS [None]
